FAERS Safety Report 6523998-4 (Version None)
Quarter: 2009Q4

REPORT INFORMATION
  Report Type: 
  Country: None (occurrence: None)
  Receive Date: 20091231
  Receipt Date: 20091222
  Transmission Date: 20100525
  Serious: Yes (Hospitalization)
  Sender: FDA-Public Use
  Company Number: FR-ELI_LILLY_AND_COMPANY-FR200911006943

PATIENT
  Age: 32 Year
  Sex: Male
  Weight: 42 kg

DRUGS (1)
  1. UMATROPE [Suspect]
     Indication: GROWTH RETARDATION
     Dosage: UNK, UNKNOWN
     Route: 058
     Dates: start: 19900101, end: 19950101

REACTIONS (3)
  - BONE CYST [None]
  - BONE PAIN [None]
  - EXOSTOSIS [None]
